FAERS Safety Report 6698531-7 (Version None)
Quarter: 2010Q2

REPORT INFORMATION
  Report Type: 
  Country: None (occurrence: None)
  Receive Date: 20100427
  Receipt Date: 20100419
  Transmission Date: 20101027
  Serious: Yes (Hospitalization)
  Sender: FDA-Public Use
  Company Number: GXKR2010FR04395

PATIENT
  Age: 49 Year
  Sex: Male

DRUGS (3)
  1. VENLAFAXINE HCL [Suspect]
     Indication: MAJOR DEPRESSION
     Dosage: 150 MG, DAILY
     Dates: start: 20060301
  2. VENLAFAXINE HCL [Suspect]
     Dosage: 75 MG, DAILY
  3. INDAPAMIDE [Concomitant]
     Indication: HYPERTENSION

REACTIONS (7)
  - CARDIOGENIC SHOCK [None]
  - CONGESTIVE CARDIOMYOPATHY [None]
  - DYSPNOEA [None]
  - HYPOTENSION [None]
  - ORTHOPNOEA [None]
  - TACHYCARDIA [None]
  - VENTRICULAR ARRHYTHMIA [None]
